FAERS Safety Report 11230537 (Version 1)
Quarter: 2015Q2

REPORT INFORMATION
  Report Type: Spontaneous
  Country: JP (occurrence: None)
  Receive Date: 20150629
  Receipt Date: 20150629
  Transmission Date: 20150821
  Serious: Yes (Hospitalization)
  Sender: FDA-Public Use
  Company Number: 2009JP001930

PATIENT
  Age: 18 Year
  Sex: Female
  Weight: 38 kg

DRUGS (4)
  1. TACROLIMUS CAPSULES (TACROLIMUS) CAPSULE [Suspect]
     Active Substance: TACROLIMUS
     Indication: LUPUS NEPHRITIS
     Route: 048
     Dates: start: 20071004, end: 20140731
  2. PERSANTIN (DIPY7RIDAMOLE) TABLET [Concomitant]
  3. PREDNISOLONE. [Concomitant]
     Active Substance: PREDNISOLONE
  4. SELBEX (TEPRENONE) CAPSULE [Concomitant]

REACTIONS (2)
  - Systemic lupus erythematosus [None]
  - DNA antibody positive [None]

NARRATIVE: CASE EVENT DATE: 20081106
